FAERS Safety Report 6235710-7 (Version None)
Quarter: 2009Q2

REPORT INFORMATION
  Report Type: 
  Country: None (occurrence: None)
  Receive Date: 20090616
  Receipt Date: 20000526
  Transmission Date: 20091009
  Serious: Yes (Other)
  Sender: FDA-Public Use
  Company Number: 477403

PATIENT
  Age: 4 Year
  Sex: Female

DRUGS (1)
  1. COMPOUND W LIQUID [Suspect]
     Indication: SKIN PAPILLOMA
     Dosage: MULTIPLE WART APPLICATION X 1
     Dates: start: 20090524, end: 20090524

REACTIONS (3)
  - APPLICATION SITE ERYTHEMA [None]
  - APPLICATION SITE ULCER [None]
  - INFECTED SKIN ULCER [None]
